FAERS Safety Report 15363471 (Version 6)
Quarter: 2019Q3

REPORT INFORMATION
  Report Type: Report from Study
  Country: US (occurrence: US)
  Receive Date: 20180907
  Receipt Date: 20190820
  Transmission Date: 20191004
  Serious: No
  Sender: FDA-Public Use
  Company Number: PHEH2018US037423

PATIENT
  Sex: Female

DRUGS (6)
  1. TRESIBA [Concomitant]
     Active Substance: INSULIN DEGLUDEC
     Indication: DIABETES MELLITUS
     Dosage: UNK UNK, QD
     Route: 058
  2. COSENTYX [Suspect]
     Active Substance: SECUKINUMAB
     Indication: PSORIASIS
     Dosage: 300 MG, QMO
     Route: 058
     Dates: start: 20180515
  3. LEVETIRACETAM. [Concomitant]
     Active Substance: LEVETIRACETAM
     Indication: SEIZURE
     Dosage: UNK UNK, QD
     Route: 048
  4. SIMVASTATIN. [Concomitant]
     Active Substance: SIMVASTATIN
     Indication: MOYAMOYA DISEASE
     Dosage: UNK UNK, QD
     Route: 048
  5. EPICERAM [Concomitant]
     Active Substance: DEVICE
     Indication: PSORIASIS
     Dosage: UNK UNK, QD
     Route: 061
  6. NOVOLOG [Concomitant]
     Active Substance: INSULIN ASPART
     Indication: DIABETES MELLITUS
     Dosage: UNK UNK, QD
     Route: 058

REACTIONS (5)
  - Temperature intolerance [Unknown]
  - Psoriasis [Unknown]
  - Therapeutic product effect decreased [Unknown]
  - Pruritus [Unknown]
  - Cognitive disorder [Unknown]
